FAERS Safety Report 12880240 (Version 2)
Quarter: 2016Q4

REPORT INFORMATION
  Report Type: Report from Study
  Country: MX (occurrence: MX)
  Receive Date: 20161025
  Receipt Date: 20161028
  Transmission Date: 20170207
  Serious: Yes (Other)
  Sender: FDA-Public Use
  Company Number: PHHY2016MX145783

PATIENT
  Age: 52 Year
  Sex: Female
  Weight: 70 kg

DRUGS (6)
  1. METFORMIN [Concomitant]
     Active Substance: METFORMIN HYDROCHLORIDE
     Indication: PRODUCT USED FOR UNKNOWN INDICATION
     Dosage: 850 OT (UNITS NOT PROVIDED)
     Route: 065
  2. GALVUS [Suspect]
     Active Substance: VILDAGLIPTIN
     Indication: DIABETES MELLITUS
     Dosage: 1 DF (50 MG), QD
     Route: 048
  3. EXFORGE [Suspect]
     Active Substance: AMLODIPINE BESYLATE\VALSARTAN
     Indication: HYPERTENSION
     Dosage: 1 DF (AMLODIPINE 5 MG, VALSARTAN 160 MG), QD
     Route: 065
  4. EXFORGE [Suspect]
     Active Substance: AMLODIPINE BESYLATE\VALSARTAN
     Dosage: 1.5 DF (AMLODIPINE 5 MG, VALSARTAN 160 MG), QD (1 IN THE MORNING AND 1/2 AT NIGHT)
     Route: 048
     Dates: start: 201511, end: 201606
  5. DIMEFOR [Concomitant]
     Indication: DIABETES MELLITUS
     Dosage: 2.5 DF, QD; 8 YEARS
     Route: 048
  6. ASPIRIN PROTEC [Concomitant]
     Indication: HYPERTENSION
     Dosage: 1 DF, QD; 4 YEARS
     Route: 048

REACTIONS (10)
  - Pain in extremity [Unknown]
  - Drug ineffective [Recovered/Resolved]
  - Musculoskeletal pain [Unknown]
  - Pain [Recovering/Resolving]
  - Blood pressure increased [Recovered/Resolved]
  - Movement disorder [Unknown]
  - Fatigue [Unknown]
  - Wrong technique in product usage process [Recovered/Resolved]
  - Depression [Unknown]
  - Facial paralysis [Recovered/Resolved]

NARRATIVE: CASE EVENT DATE: 201511
